FAERS Safety Report 13762403 (Version 1)
Quarter: 2017Q3

REPORT INFORMATION
  Report Type: Spontaneous
  Country: US (occurrence: US)
  Receive Date: 20170717
  Receipt Date: 20170717
  Transmission Date: 20171127
  Serious: Yes (Disabling)
  Sender: FDA-Public Use
  Company Number: None

PATIENT
  Age: 70 Year
  Sex: Male
  Weight: 74.25 kg

DRUGS (10)
  1. BENADRYL [Concomitant]
     Active Substance: DIPHENHYDRAMINE HYDROCHLORIDE
  2. ERIVEDGE [Suspect]
     Active Substance: VISMODEGIB
     Indication: BASAL CELL CARCINOMA
     Route: 048
     Dates: start: 20170119, end: 20170407
  3. VITAMIN D [Concomitant]
     Active Substance: CHOLECALCIFEROL
  4. VITAMIN B COMPLEX [Concomitant]
     Active Substance: CYANOCOBALAMIN\DEXPANTHENOL\NIACINAMIDE\PYRIDOXINE HYDROCHLORIDE\RIBOFLAVIN 5^-PHOSPHATE SODIUM\THIAMINE HYDROCHLORIDE\VITAMIN B COMPLEX
  5. TURMERIC [Concomitant]
     Active Substance: HERBALS\TURMERIC
  6. ERIVEDGE [Suspect]
     Active Substance: VISMODEGIB
     Indication: PROPHYLAXIS
     Route: 048
     Dates: start: 20170119, end: 20170407
  7. CALCIUM [Concomitant]
     Active Substance: CALCIUM
  8. CLARITIN [Concomitant]
     Active Substance: LORATADINE
  9. VITAMIN C [Concomitant]
     Active Substance: ASCORBIC ACID
  10. B3 [Concomitant]

REACTIONS (9)
  - Discomfort [None]
  - Myalgia [None]
  - Musculoskeletal stiffness [None]
  - Back pain [None]
  - Joint stiffness [None]
  - Sleep disorder [None]
  - Asthenia [None]
  - Arthralgia [None]
  - Autoimmune disorder [None]

NARRATIVE: CASE EVENT DATE: 20170215
